FAERS Safety Report 9825181 (Version 1)
Quarter: 2013Q4

REPORT INFORMATION
  Report Type: Spontaneous
  Country: US (occurrence: None)
  Receive Date: 20131028
  Receipt Date: 20131028
  Transmission Date: 20140711
  Serious: No
  Sender: FDA-Public Use
  Company Number: 2013US002341

PATIENT
  Age: 79 Year
  Sex: Male

DRUGS (1)
  1. ICLUSIG (PONATINIB) TABLET, 45MG [Suspect]
     Dosage: 45 MG, QD, ORAL
     Route: 048
     Dates: start: 201308

REACTIONS (1)
  - Abdominal pain [None]
